FAERS Safety Report 11457818 (Version 1)
Quarter: 2015Q3

REPORT INFORMATION
  Report Type: Spontaneous
  Country: US (occurrence: None)
  Receive Date: 20150903
  Receipt Date: 20150903
  Transmission Date: 20151125
  Serious: No
  Sender: FDA-Public Use
  Company Number: None

PATIENT
  Age: 62 Year
  Sex: Female
  Weight: 56.25 kg

DRUGS (8)
  1. COD LIVER OIL [Concomitant]
     Active Substance: COD LIVER OIL
  2. VITAMIN B COMPLEX [Concomitant]
     Active Substance: CYANOCOBALAMIN\DEXPANTHENOL\NIACINAMIDE\PYRIDOXINE HYDROCHLORIDE\RIBOFLAVIN 5^-PHOSPHATE SODIUM\THIAMINE HYDROCHLORIDE\VITAMIN B COMPLEX
  3. CALCIUM MAG [Concomitant]
  4. SIMVASTATIN 20MG LUPIN [Suspect]
     Active Substance: SIMVASTATIN
     Indication: VASCULAR CALCIFICATION
     Dosage: EVERY OTHER DAY
     Route: 048
     Dates: start: 20150812, end: 20150818
  5. ZINC [Concomitant]
     Active Substance: ZINC\ZINC CHLORIDE
  6. COQ10 [Concomitant]
     Active Substance: UBIDECARENONE
  7. D3 [Concomitant]
     Active Substance: 25-HYDROXYCHOLECALCIFEROL, 5-TRANS-
  8. VITAMIN C [Concomitant]
     Active Substance: ASCORBIC ACID

REACTIONS (4)
  - Muscle tightness [None]
  - Exercise tolerance decreased [None]
  - Myalgia [None]
  - Muscular weakness [None]

NARRATIVE: CASE EVENT DATE: 20150812
